FAERS Safety Report 9651938 (Version 1)
Quarter: 2013Q4

REPORT INFORMATION
  Report Type: Spontaneous
  Country: US (occurrence: US)
  Receive Date: 20131029
  Receipt Date: 20131029
  Transmission Date: 20140711
  Serious: Yes (Hospitalization)
  Sender: FDA-Public Use
  Company Number: US-B.I. PHARMACEUTICALS,INC./RIDGEFIELD-2013-BI-33767BP

PATIENT
  Age: 77 Year
  Sex: Female
  Weight: 59 kg

DRUGS (4)
  1. SPIRIVA [Suspect]
     Indication: CHRONIC OBSTRUCTIVE PULMONARY DISEASE
     Dosage: 18 MCG
     Route: 055
     Dates: start: 201212
  2. XANAX [Concomitant]
     Indication: NERVOUS SYSTEM DISORDER
     Dosage: 1 MG
     Route: 048
  3. HYOSCYAMINE [Concomitant]
     Indication: GASTRIC DISORDER
     Dosage: 0.125 MG
     Route: 048
  4. IPRATROPIUM/ALBUTEROL [Concomitant]
     Indication: CHRONIC OBSTRUCTIVE PULMONARY DISEASE
     Dosage: 2.5 ML
     Route: 055

REACTIONS (1)
  - Cerebrovascular accident [Recovered/Resolved]
